FAERS Safety Report 5024466-1 (Version None)
Quarter: 2006Q2

REPORT INFORMATION
  Report Type: 
  Country: None (occurrence: None)
  Receive Date: 20060613
  Receipt Date: 20050803
  Transmission Date: 20061013
  Serious: Yes (Death)
  Sender: FDA-Public Use
  Company Number: PHEH2005US08617

PATIENT

DRUGS (1)
  1. FEMARA [Suspect]

REACTIONS (1)
  - DEATH [None]
